FAERS Safety Report 9290211 (Version 2)
Quarter: 2013Q2

REPORT INFORMATION
  Report Type: Spontaneous
  Country: CL (occurrence: CL)
  Receive Date: 20130515
  Receipt Date: 20130618
  Transmission Date: 20140414
  Serious: Yes (Hospitalization)
  Sender: FDA-Public Use
  Company Number: CL-JNJFOC-20130504783

PATIENT
  Age: 46 Year
  Sex: Male

DRUGS (5)
  1. TRAMAL [Suspect]
     Indication: PRODUCT USED FOR UNKNOWN INDICATION
     Route: 048
  2. ALPRAZOLAM [Suspect]
     Indication: PRODUCT USED FOR UNKNOWN INDICATION
     Route: 065
  3. PREGABALIN [Suspect]
     Indication: PRODUCT USED FOR UNKNOWN INDICATION
     Route: 065
  4. INSULIN PORCINE [Suspect]
     Indication: DIABETES MELLITUS
     Route: 065
  5. IRON [Suspect]
     Indication: ANAEMIA
     Route: 065

REACTIONS (6)
  - Respiratory depression [Unknown]
  - Pallor [Recovered/Resolved]
  - Slow response to stimuli [Recovered/Resolved]
  - Foaming at mouth [Recovered/Resolved]
  - Pneumonia [Unknown]
  - Hyperhidrosis [Recovered/Resolved]
